FAERS Safety Report 21189915 (Version 1)
Quarter: 2022Q3

REPORT INFORMATION
  Report Type: Spontaneous
  Country: US (occurrence: US)
  Receive Date: 20220809
  Receipt Date: 20220809
  Transmission Date: 20221027
  Serious: Yes (Hospitalization, Other)
  Sender: FDA-Public Use
  Company Number: US-BRISTOL-MYERS SQUIBB COMPANY-2022-082916

PATIENT
  Age: 55 Year
  Sex: Male
  Weight: 70.31 kg

DRUGS (3)
  1. REVLIMID [Suspect]
     Active Substance: LENALIDOMIDE
     Indication: Lymphoma
     Dosage: FREQ : THREE WEEKS ON/ONE WEEK OF
     Route: 065
  2. REVLIMID [Suspect]
     Active Substance: LENALIDOMIDE
     Route: 048
  3. ASPIRIN [Suspect]
     Active Substance: ASPIRIN
     Indication: Product used for unknown indication
     Dosage: FREQ : THREE WEEKS ON/ONE WEEK OF
     Route: 065

REACTIONS (4)
  - Platelet count decreased [Unknown]
  - Drug intolerance [Unknown]
  - Weight decreased [Unknown]
  - Blood test abnormal [Unknown]
